FAERS Safety Report 9353517 (Version 1)
Quarter: 2013Q2

REPORT INFORMATION
  Report Type: Spontaneous
  Country: US (occurrence: US)
  Receive Date: 20130618
  Receipt Date: 20130618
  Transmission Date: 20140414
  Serious: Yes (Hospitalization)
  Sender: FDA-Public Use
  Company Number: US-ELI_LILLY_AND_COMPANY-US201306003048

PATIENT
  Age: 55 Year
  Sex: Female
  Weight: 111 kg

DRUGS (1)
  1. EFFIENT [Suspect]
     Indication: CORONARY ARTERY DISEASE
     Dosage: UNK
     Dates: start: 20120721

REACTIONS (1)
  - Appendicitis [Unknown]
